FAERS Safety Report 5075680-0 (Version None)
Quarter: 2006Q3

REPORT INFORMATION
  Report Type: 
  Country: None (occurrence: None)
  Receive Date: 20060809
  Receipt Date: 20060117
  Transmission Date: 20061208
  Serious: No
  Sender: FDA-Public Use
  Company Number: US-AMGEN-KDL165621

PATIENT
  Sex: Male
  Weight: 80 kg

DRUGS (2)
  1. PROCRIT [Suspect]
     Indication: MYELODYSPLASTIC SYNDROME
     Route: 058
     Dates: start: 20010101
  2. CELEBREX [Concomitant]

REACTIONS (1)
  - LABORATORY TEST INTERFERENCE [None]
